FAERS Safety Report 16735595 (Version 1)
Quarter: 2019Q3

REPORT INFORMATION
  Report Type: Spontaneous
  Country: US (occurrence: US)
  Receive Date: 20190823
  Receipt Date: 20190823
  Transmission Date: 20191005
  Serious: No
  Sender: FDA-Public Use
  Company Number: None

PATIENT
  Age: 67 Year
  Sex: Female
  Weight: 48.15 kg

DRUGS (1)
  1. PREDNISONE. [Suspect]
     Active Substance: PREDNISONE
     Indication: NASAL INFLAMMATION
     Dosage: ?          QUANTITY:1 TABLET(S);OTHER FREQUENCY:ONE TIME DOSE;?
     Route: 048
     Dates: start: 20190821, end: 20190821

REACTIONS (1)
  - Insomnia [None]

NARRATIVE: CASE EVENT DATE: 20190821
